FAERS Safety Report 9795333 (Version 1)
Quarter: 2014Q1

REPORT INFORMATION
  Report Type: Spontaneous
  Country: GB (occurrence: GB)
  Receive Date: 20140103
  Receipt Date: 20140103
  Transmission Date: 20141002
  Serious: Yes (Hospitalization)
  Sender: FDA-Public Use
  Company Number: GB-JNJFOC-20131214648

PATIENT
  Age: 18 Month
  Sex: Male

DRUGS (2)
  1. CALPOL [Suspect]
     Route: 048
  2. CALPOL [Suspect]
     Indication: ACCIDENTAL EXPOSURE TO PRODUCT
     Dosage: A FAIRLY LARGE AMOUNT
     Route: 048

REACTIONS (2)
  - Accidental exposure to product [Unknown]
  - Product packaging issue [Unknown]
